FAERS Safety Report 17170083 (Version 8)
Quarter: 2020Q4

REPORT INFORMATION
  Report Type: Report from Study
  Country: US (occurrence: US)
  Receive Date: 20191218
  Receipt Date: 20201210
  Transmission Date: 20210113
  Serious: Yes (Other)
  Sender: FDA-Public Use
  Company Number: NVSC2019US068796

PATIENT
  Age: 64 Year
  Sex: Female

DRUGS (2)
  1. COSENTYX [Suspect]
     Active Substance: SECUKINUMAB
     Dosage: 300 MG, UNKNOWN
     Route: 058
     Dates: start: 20200222
  2. COSENTYX [Suspect]
     Active Substance: SECUKINUMAB
     Indication: PSORIASIS
     Dosage: 300 MG, UNKNOWN
     Route: 058
     Dates: start: 20191121

REACTIONS (13)
  - Acute sinusitis [Unknown]
  - Dyspnoea [Unknown]
  - Dry skin [Unknown]
  - Uveitis [Not Recovered/Not Resolved]
  - Eye infection [Not Recovered/Not Resolved]
  - Wheezing [Unknown]
  - Pruritus [Recovering/Resolving]
  - Product dose omission issue [Unknown]
  - Malaise [Unknown]
  - Cough [Unknown]
  - Psoriasis [Unknown]
  - Arthralgia [Unknown]
  - Skin irritation [Unknown]

NARRATIVE: CASE EVENT DATE: 20191128
